FAERS Safety Report 11394610 (Version 3)
Quarter: 2015Q3

REPORT INFORMATION
  Report Type: Report from Study
  Country: CN (occurrence: CN)
  Receive Date: 20150819
  Receipt Date: 20150902
  Transmission Date: 20151125
  Serious: Yes (Other)
  Sender: FDA-Public Use
  Company Number: CN-EMD SERONO-8038439

PATIENT

DRUGS (4)
  1. LUVERIS [Suspect]
     Active Substance: LUTROPIN ALFA
     Indication: PRODUCT USED FOR UNKNOWN INDICATION
     Dates: start: 20150806, end: 20150807
  2. LUVERIS [Suspect]
     Active Substance: LUTROPIN ALFA
     Dates: start: 20150807
  3. TRIPTORELIN [Suspect]
     Active Substance: TRIPTORELIN
     Indication: PRODUCT USED FOR UNKNOWN INDICATION
     Route: 048
     Dates: end: 20150808
  4. UREA. [Concomitant]
     Active Substance: UREA
     Indication: PRODUCT USED FOR UNKNOWN INDICATION

REACTIONS (2)
  - Drug hypersensitivity [Unknown]
  - Shock [Recovered/Resolved]

NARRATIVE: CASE EVENT DATE: 20150807
